FAERS Safety Report 5088227-X (Version None)
Quarter: 2006Q3

REPORT INFORMATION
  Report Type: 
  Country: None (occurrence: None)
  Receive Date: 20060727
  Receipt Date: 20060609
  Transmission Date: 20061208
  Serious: Yes (Other)
  Sender: FDA-Public Use
  Company Number: 2006075294

PATIENT
  Age: 68 Year
  Sex: Male
  Weight: 88.4514 kg

DRUGS (6)
  1. LYRICA [Suspect]
     Indication: PAIN IN EXTREMITY
     Dosage: 150 MG (75 MG, 2 IN 1 D)
     Dates: start: 20060505, end: 20060506
  2. ZELNORM [Concomitant]
  3. NORVASC [Concomitant]
  4. TAMSULOSIN HYDROCHLORIDE( TAMSULOSIN HYDROCHLORIDE) [Concomitant]
  5. ADVAIR DISKUS 100/50 [Concomitant]
  6. COMBIVENT [Concomitant]

REACTIONS (3)
  - NAIL DISCOLOURATION [None]
  - OEDEMA PERIPHERAL [None]
  - PAIN [None]
